FAERS Safety Report 7927833-9 (Version None)
Quarter: 2011Q4

REPORT INFORMATION
  Report Type: 
  Country: None (occurrence: None)
  Receive Date: 20111118
  Receipt Date: 20111114
  Transmission Date: 20120403
  Serious: Yes (Death, Hospitalization)
  Sender: FDA-Public Use
  Company Number: NL-SANOFI-AVENTIS-2011SA015881

PATIENT
  Age: 79 Year
  Sex: Male

DRUGS (9)
  1. FUROSEMIDE [Suspect]
     Route: 065
     Dates: start: 20110115, end: 20110115
  2. NOVORAPID [Concomitant]
     Indication: TYPE 2 DIABETES MELLITUS
     Dosage: DOSE:64 UNIT(S)
     Route: 065
  3. PLACEBO [Concomitant]
     Indication: TYPE 2 DIABETES MELLITUS
     Route: 065
     Dates: start: 20101122
  4. ALL OTHER THERAPEUTIC PRODUCTS [Concomitant]
     Dates: start: 20101119
  5. NITROFURANTOIN [Concomitant]
     Dates: start: 20110310, end: 20110313
  6. INVESTIGATIONAL DRUG [Concomitant]
     Indication: TYPE 2 DIABETES MELLITUS
     Route: 065
     Dates: start: 20101122, end: 20110313
  7. METFORMIN HCL [Concomitant]
     Indication: TYPE 2 DIABETES MELLITUS
     Route: 065
  8. LANTUS [Concomitant]
     Indication: TYPE 2 DIABETES MELLITUS
     Dosage: DOSE:80 UNIT(S)
     Route: 058
  9. ASPIRIN [Concomitant]
     Dates: start: 20101119

REACTIONS (5)
  - DYSPNOEA [None]
  - ARRHYTHMIA [None]
  - HYPOVOLAEMIA [None]
  - CIRCULATORY COLLAPSE [None]
  - HYPOTENSION [None]
